FAERS Safety Report 14582918 (Version 2)
Quarter: 2018Q1

REPORT INFORMATION
  Report Type: Spontaneous
  Country: US (occurrence: US)
  Receive Date: 20180228
  Receipt Date: 20180314
  Transmission Date: 20180509
  Serious: Yes (Death, Hospitalization, Disabling, Other)
  Sender: FDA-Public Use
  Company Number: US-GLAXOSMITHKLINE-US2018GSK033222

PATIENT
  Age: 66 Year
  Sex: Male

DRUGS (1)
  1. FLOVENT [Suspect]
     Active Substance: FLUTICASONE PROPIONATE
     Indication: PRODUCT USED FOR UNKNOWN INDICATION
     Route: 055

REACTIONS (12)
  - Dyspnoea [Fatal]
  - Loss of personal independence in daily activities [Not Recovered/Not Resolved]
  - Foot fracture [Unknown]
  - Muscular weakness [Not Recovered/Not Resolved]
  - Grip strength decreased [Unknown]
  - Pneumonia [Unknown]
  - Muscular dystrophy [Fatal]
  - Fall [Unknown]
  - Mobility decreased [Unknown]
  - Lung disorder [Fatal]
  - Lung perforation [Unknown]
  - Rib fracture [Unknown]

NARRATIVE: CASE EVENT DATE: 20180110
